FAERS Safety Report 5081917-4 (Version None)
Quarter: 2006Q3

REPORT INFORMATION
  Report Type: 
  Country: None (occurrence: None)
  Receive Date: 20060816
  Receipt Date: 20060811
  Transmission Date: 20061208
  Serious: Yes (Life-Threatening, Hospitalization)
  Sender: FDA-Public Use
  Company Number: FR-ABBOTT-06P-056-0340233-00

PATIENT
  Age: 54 Year
  Sex: Male

DRUGS (10)
  1. DEPAKOTE [Suspect]
     Indication: ABNORMAL BEHAVIOUR
     Route: 048
     Dates: start: 20060712, end: 20060718
  2. DIPOTASSIUM CLORAZEPATE [Suspect]
     Indication: ABNORMAL BEHAVIOUR
     Route: 048
     Dates: end: 20060718
  3. DIPOTASSIUM CLORAZEPATE [Suspect]
     Route: 048
     Dates: start: 20060720
  4. TIAPRIDE [Suspect]
     Indication: ABNORMAL BEHAVIOUR
     Route: 048
     Dates: start: 20060712, end: 20060718
  5. TIAPRIDE [Suspect]
     Route: 048
     Dates: end: 20060711
  6. ASPIRIN [Concomitant]
     Indication: DRUG USE FOR UNKNOWN INDICATION
     Route: 048
  7. NULYTELY [Concomitant]
     Indication: DRUG USE FOR UNKNOWN INDICATION
     Route: 048
  8. PRAVASTATIN SODIUM [Concomitant]
     Indication: DRUG USE FOR UNKNOWN INDICATION
     Route: 048
  9. VALPROMIDE [Concomitant]
     Indication: ABNORMAL BEHAVIOUR
     Route: 048
     Dates: end: 20060711
  10. CYAMEMAZINE [Concomitant]
     Indication: DRUG USE FOR UNKNOWN INDICATION
     Dates: start: 20060720

REACTIONS (4)
  - DEPRESSED LEVEL OF CONSCIOUSNESS [None]
  - DRUG LEVEL INCREASED [None]
  - HYPOTENSION [None]
  - RESPIRATORY DISTRESS [None]
